FAERS Safety Report 4657449-1 (Version None)
Quarter: 2005Q2

REPORT INFORMATION
  Report Type: 
  Country: None (occurrence: None)
  Receive Date: 20050506
  Receipt Date: 20050425
  Transmission Date: 20051028
  Serious: Yes (Other)
  Sender: FDA-Public Use
  Company Number: 2005065715

PATIENT
  Age: 22 Month
  Sex: Male
  Weight: 14.5151 kg

DRUGS (2)
  1. BENADRYL [Suspect]
     Indication: HYPERSENSITIVITY
     Dosage: 1/2 TEASPOON ONE TIME, ORAL
     Route: 048
     Dates: start: 20050416, end: 20050416
  2. ZYRTEC [Suspect]
     Indication: HYPERSENSITIVITY
     Dosage: ONE TSP HS, ORAL
     Route: 048
     Dates: start: 20041001

REACTIONS (3)
  - DRUG INTERACTION [None]
  - FEBRILE CONVULSION [None]
  - PRODUCTIVE COUGH [None]
